FAERS Safety Report 24346993 (Version 1)
Quarter: 2024Q3

REPORT INFORMATION
  Report Type: Spontaneous
  Country: US (occurrence: US)
  Receive Date: 20240921
  Receipt Date: 20240921
  Transmission Date: 20241016
  Serious: No
  Sender: JOHNSON AND JOHNSON
  Company Number: US-JNJFOC-20240940295

PATIENT
  Sex: Female

DRUGS (5)
  1. BENADRYL [Suspect]
     Active Substance: DIPHENHYDRAMINE HYDROCHLORIDE
     Indication: Migraine
     Route: 048
  2. IBUPROFEN [Suspect]
     Active Substance: IBUPROFEN
     Indication: Migraine
     Dosage: 200-600 MG PRN
     Route: 048
     Dates: start: 2012
  3. NP THYROID [Concomitant]
     Active Substance: LEVOTHYROXINE\LIOTHYRONINE
     Indication: Hypothyroidism
     Route: 048
     Dates: start: 20191121
  4. UNISOM SLEEPMELTS [Concomitant]
     Active Substance: DIPHENHYDRAMINE HYDROCHLORIDE
     Indication: Nausea
     Route: 065
     Dates: start: 2024
  5. NURTEC ODT [Concomitant]
     Active Substance: RIMEGEPANT SULFATE
     Indication: Migraine
     Route: 048
     Dates: start: 20231215

REACTIONS (2)
  - Exposure during pregnancy [Unknown]
  - Off label use [Unknown]
